FAERS Safety Report 9389664 (Version 2)
Quarter: 2014Q1

REPORT INFORMATION
  Report Type: Spontaneous
  Country: US (occurrence: US)
  Receive Date: 20130708
  Receipt Date: 20140307
  Transmission Date: 20141002
  Serious: No
  Sender: FDA-Public Use
  Company Number: US-AMGEN-USASP2013042609

PATIENT
  Age: 33 Year
  Sex: Male

DRUGS (2)
  1. ENBREL [Suspect]
     Indication: PSORIATIC ARTHROPATHY
     Dosage: 50 MG, QWK
     Route: 065
     Dates: start: 20050428
  2. ENBREL [Suspect]

REACTIONS (6)
  - Wrong technique in drug usage process [Recovered/Resolved]
  - Injection related reaction [Recovered/Resolved]
  - Injection site mass [Not Recovered/Not Resolved]
  - Arthralgia [Recovered/Resolved]
  - Injection site pain [Not Recovered/Not Resolved]
  - Injection site bruising [Not Recovered/Not Resolved]
